FAERS Safety Report 5269867-1 (Version None)
Quarter: 2007Q1

REPORT INFORMATION
  Report Type: 
  Country: None (occurrence: None)
  Receive Date: 20070320
  Receipt Date: 20070316
  Transmission Date: 20070707
  Serious: Yes (Hospitalization)
  Sender: FDA-Public Use
  Company Number: JP-GLAXOSMITHKLINE-B0459530A

PATIENT
  Age: 40 Year
  Sex: Male
  Weight: 70 kg

DRUGS (26)
  1. ALKERAN [Suspect]
     Indication: STEM CELL TRANSPLANT
     Route: 042
     Dates: start: 20060923, end: 20060924
  2. BUSULFAN [Suspect]
     Indication: STEM CELL TRANSPLANT
     Route: 048
     Dates: start: 20060920, end: 20060922
  3. FUROSEMIDE [Suspect]
     Route: 042
     Dates: start: 20061003, end: 20061007
  4. HABEKACIN [Suspect]
     Dates: start: 20061007, end: 20061008
  5. MINOCYCLINE HCL [Suspect]
     Dosage: 100MG PER DAY
     Dates: start: 20061008, end: 20061010
  6. NEUTROGIN [Concomitant]
     Dates: start: 20060929, end: 20061006
  7. HAPTOGLOBIN [Concomitant]
     Dates: start: 20060926, end: 20060926
  8. HYDROCORTONE [Concomitant]
     Route: 042
     Dates: start: 20060926, end: 20060926
  9. HYDROXYZINE PAMOATE [Concomitant]
     Route: 042
     Dates: start: 20060921, end: 20061018
  10. EURODIN [Concomitant]
     Route: 048
     Dates: start: 20060921, end: 20061019
  11. PENTAZOCINE LACTATE [Concomitant]
     Dates: start: 20060930, end: 20061007
  12. ROPION [Concomitant]
     Route: 042
     Dates: start: 20061003, end: 20061007
  13. HYPEN [Concomitant]
     Route: 048
     Dates: start: 20061003, end: 20061008
  14. MAXIPIME [Concomitant]
     Route: 042
     Dates: start: 20061001, end: 20061002
  15. IMMUNE GLOBULIN INTRAVENOUS (HUMAN) [Concomitant]
     Route: 042
     Dates: start: 20061002, end: 20061004
  16. MEROPEN [Concomitant]
     Route: 042
     Dates: start: 20061003, end: 20061006
  17. VANCOMYCIN [Concomitant]
     Route: 042
     Dates: start: 20061002, end: 20061006
  18. NEUART [Concomitant]
     Route: 042
     Dates: start: 20061004, end: 20061004
  19. GASTER [Concomitant]
     Route: 042
     Dates: start: 20061004, end: 20061009
  20. ZOVIRAX [Concomitant]
     Dates: start: 20060921, end: 20061006
  21. ZANTAC [Concomitant]
     Route: 048
     Dates: start: 20060921, end: 20061003
  22. SELBEX [Concomitant]
     Route: 048
     Dates: start: 20060921, end: 20061003
  23. BAKTAR [Concomitant]
     Route: 048
     Dates: start: 20060921, end: 20060925
  24. ITRACONAZOLE [Concomitant]
     Route: 048
     Dates: start: 20060921, end: 20061002
  25. LEVOFLOXACIN [Concomitant]
     Route: 048
     Dates: start: 20060921, end: 20060930
  26. URSO [Concomitant]
     Route: 048
     Dates: start: 20060921, end: 20061002

REACTIONS (6)
  - ALANINE AMINOTRANSFERASE INCREASED [None]
  - ASPARTATE AMINOTRANSFERASE INCREASED [None]
  - C-REACTIVE PROTEIN INCREASED [None]
  - HYPOKALAEMIA [None]
  - PNEUMONIA [None]
  - PYREXIA [None]
